FAERS Safety Report 11787893 (Version 1)
Quarter: 2015Q4

REPORT INFORMATION
  Report Type: Spontaneous
  Country: US (occurrence: US)
  Receive Date: 20151130
  Receipt Date: 20151130
  Transmission Date: 20160305
  Serious: Yes (Death)
  Sender: FDA-Public Use
  Company Number: US-HAEMONETICS CORP-1044816

PATIENT
  Age: 41 Year
  Sex: Male
  Weight: 118.18 kg

DRUGS (2)
  1. ANTICOAGULANT CITRATE PHOSPHATE 2X DEXTROSE SOLUTION (CP2D) [Suspect]
     Active Substance: CITRIC ACID MONOHYDRATE\DEXTROSE\SODIUM PHOSPHATE\SODIUM PHOSPHATE, MONOBASIC
     Indication: ANTICOAGULANT THERAPY
     Route: 042
     Dates: start: 20151111, end: 20151111
  2. HAEMONETICS ADDITIVE SOLUTION FORMULA 3 (AS-3) [Concomitant]
     Active Substance: ADENINE\ANHYDROUS DEXTROSE\CITRIC ACID MONOHYDRATE\SODIUM CHLORIDE\SODIUM PHOSPHATE, MONOBASIC, MONOHYDRATE\TRISODIUM CITRATE DIHYDRATE
     Route: 042
     Dates: start: 20151111, end: 20151111

REACTIONS (1)
  - Myocardial infarction [None]

NARRATIVE: CASE EVENT DATE: 20151111
